FAERS Safety Report 16678205 (Version 1)
Quarter: 2019Q3

REPORT INFORMATION
  Report Type: Spontaneous
  Country: US (occurrence: US)
  Receive Date: 20190806
  Receipt Date: 20190806
  Transmission Date: 20191004
  Serious: Yes (Hospitalization)
  Sender: FDA-Public Use
  Company Number: None

PATIENT
  Sex: Male

DRUGS (7)
  1. MYCOPHENOLIC [Suspect]
     Active Substance: MYCOPHENOLIC ACID
     Indication: LIVER TRANSPLANT
     Route: 048
     Dates: start: 20190702
  2. AMIODARONE, BACTRIM DS, COLACE [Concomitant]
  3. FERROUS SULF, LOW DOSE ASA [Concomitant]
  4. SENNA, VITAMIN D [Concomitant]
  5. TACROLIMUS. [Suspect]
     Active Substance: TACROLIMUS
     Indication: LIVER TRANSPLANT
     Route: 048
     Dates: start: 20190702
  6. MAG OXIDE, MELATONIN, MIDODRINE [Concomitant]
  7. NEPHYRO-VITE, PEPCID, RENVELA [Concomitant]

REACTIONS (4)
  - Nausea [None]
  - Vomiting [None]
  - Dizziness [None]
  - Blood sodium decreased [None]
